FAERS Safety Report 5335179-0 (Version None)
Quarter: 2007Q2

REPORT INFORMATION
  Report Type: 
  Country: None (occurrence: None)
  Receive Date: 20070525
  Receipt Date: 20070515
  Transmission Date: 20071010
  Serious: Yes (Hospitalization, Other)
  Sender: FDA-Public Use
  Company Number: US-PFIZER INC-2005161544

PATIENT
  Sex: Male
  Weight: 70.8 kg

DRUGS (13)
  1. CELEBREX [Suspect]
     Indication: PAIN
  2. BEXTRA [Suspect]
     Indication: OSTEOARTHRITIS
     Dates: start: 20031003, end: 20040806
  3. BEXTRA [Suspect]
     Dosage: DAILY DOSE:20MG
     Dates: start: 20041122, end: 20050310
  4. VIOXX [Suspect]
  5. ACTONEL [Concomitant]
  6. CLARINEX [Concomitant]
  7. BACLOFEN [Concomitant]
  8. PREVACID [Concomitant]
  9. ZANTAC [Concomitant]
  10. LORTAB [Concomitant]
  11. RESTORIL [Concomitant]
  12. ADVAIR DISKUS 100/50 [Concomitant]
  13. VYTORIN [Concomitant]

REACTIONS (4)
  - CAROTID ARTERY STENOSIS [None]
  - CHEST PAIN [None]
  - EMBOLISM [None]
  - TRANSIENT ISCHAEMIC ATTACK [None]
